FAERS Safety Report 18382298 (Version 1)
Quarter: 2020Q4

REPORT INFORMATION
  Report Type: Spontaneous
  Country: US (occurrence: US)
  Receive Date: 20201013
  Receipt Date: 20201013
  Transmission Date: 20210114
  Serious: No
  Sender: FDA-Public Use
  Company Number: None

PATIENT
  Age: 58 Year
  Sex: Female
  Weight: 92 kg

DRUGS (5)
  1. APAP PRN (2 DOSES) [Concomitant]
     Dates: start: 20201008
  2. VEKLURY [Concomitant]
     Active Substance: REMDESIVIR
     Dates: end: 20201011
  3. CEFEPIME [Concomitant]
     Active Substance: CEFEPIME HYDROCHLORIDE
     Dates: start: 20201008, end: 20201010
  4. AZITHROMYCIN ANHYDROUS. [Concomitant]
     Active Substance: AZITHROMYCIN ANHYDROUS
     Dates: start: 20201008
  5. VEKLURY [Suspect]
     Active Substance: REMDESIVIR
     Indication: COVID-19 TREATMENT

REACTIONS (3)
  - Aspartate aminotransferase increased [None]
  - Liver function test increased [None]
  - Alanine aminotransferase increased [None]

NARRATIVE: CASE EVENT DATE: 20201012
